FAERS Safety Report 24201572 (Version 2)
Quarter: 2025Q1

REPORT INFORMATION
  Report Type: Spontaneous
  Country: US (occurrence: US)
  Receive Date: 20240812
  Receipt Date: 20250221
  Transmission Date: 20250409
  Serious: Yes (Other)
  Sender: CSL BEHRING
  Company Number: US-BEH-2024176760

PATIENT
  Age: 67 Year
  Sex: Female

DRUGS (3)
  1. HAEGARDA [Suspect]
     Active Substance: HUMAN C1-ESTERASE INHIBITOR
     Indication: Hereditary angioedema
     Route: 058
     Dates: start: 201907
  2. HAEGARDA [Suspect]
     Active Substance: HUMAN C1-ESTERASE INHIBITOR
     Indication: Prophylaxis
     Dosage: 3000 IU, BIW
     Route: 058
     Dates: start: 201907
  3. HAEGARDA [Suspect]
     Active Substance: HUMAN C1-ESTERASE INHIBITOR
     Route: 065
     Dates: start: 202501

REACTIONS (4)
  - Cataract [Unknown]
  - Glaucoma [Unknown]
  - Injection site pain [Unknown]
  - Injection site discomfort [Unknown]

NARRATIVE: CASE EVENT DATE: 20240722
